FAERS Safety Report 13245411 (Version 1)
Quarter: 2017Q1

REPORT INFORMATION
  Report Type: Report from Study
  Country: US (occurrence: US)
  Receive Date: 20170217
  Receipt Date: 20170217
  Transmission Date: 20170428
  Serious: Yes (Hospitalization)
  Sender: FDA-Public Use
  Company Number: US-ROCHE-1893669

PATIENT
  Age: 1 Year
  Sex: Male
  Weight: 13.08 kg

DRUGS (7)
  1. SODIUM CHLORIDE. [Concomitant]
     Active Substance: SODIUM CHLORIDE
     Indication: LUNG DISORDER
     Dosage: 4.0, INTERVAL ONE DAY
     Route: 065
  2. PULMOZYME [Suspect]
     Active Substance: DORNASE ALFA
     Indication: BRONCHOPULMONARY DYSPLASIA
     Dosage: NO
     Route: 055
     Dates: start: 20170125, end: 20170127
  3. ADVAIR HFA [Concomitant]
     Active Substance: FLUTICASONE PROPIONATE\SALMETEROL XINAFOATE
     Indication: LUNG DISORDER
     Dosage: 115/21MG ;ONGOING: YES
     Route: 055
  4. TOBRAMYCIN. [Concomitant]
     Active Substance: TOBRAMYCIN
     Indication: LUNG DISORDER
     Dosage: YES
     Route: 055
     Dates: start: 201403
  5. PULMOZYME [Suspect]
     Active Substance: DORNASE ALFA
     Indication: LUNG DISORDER
     Dosage: NO
     Route: 055
     Dates: start: 201403, end: 20170101
  6. COLISTIN [Concomitant]
     Active Substance: COLISTIN
     Indication: LUNG DISORDER
     Dosage: NO
     Route: 055
     Dates: end: 20170101
  7. XOPENEX [Concomitant]
     Active Substance: LEVALBUTEROL HYDROCHLORIDE
     Indication: LUNG DISORDER
     Dosage: YES
     Route: 055

REACTIONS (6)
  - Parainfluenzae virus infection [Recovering/Resolving]
  - Autism spectrum disorder [Not Recovered/Not Resolved]
  - Enterovirus infection [Recovering/Resolving]
  - Rhinovirus infection [Recovering/Resolving]
  - Pneumonia [Recovering/Resolving]
  - Seizure [Not Recovered/Not Resolved]

NARRATIVE: CASE EVENT DATE: 201410
